FAERS Safety Report 6133483-X (Version None)
Quarter: 2009Q1

REPORT INFORMATION
  Report Type: 
  Country: None (occurrence: None)
  Receive Date: 20090324
  Receipt Date: 20090324
  Transmission Date: 20090719
  Serious: No
  Sender: FDA-Public Use
  Company Number: None

PATIENT
  Age: 41 Year
  Sex: Male
  Weight: 70.3075 kg

DRUGS (3)
  1. GEODON [Suspect]
     Indication: BIPOLAR DISORDER
     Dosage: PO
     Route: 048
     Dates: start: 20080402, end: 20080426
  2. ABILIFY [Concomitant]
  3. LAMICTAL [Concomitant]

REACTIONS (1)
  - AKATHISIA [None]
